FAERS Safety Report 9057894 (Version 1)
Quarter: 2013Q1

REPORT INFORMATION
  Report Type: Spontaneous
  Country: US (occurrence: None)
  Receive Date: 20130204
  Receipt Date: 20130204
  Transmission Date: 20140127
  Serious: Yes (Hospitalization)
  Sender: FDA-Public Use
  Company Number: None

PATIENT
  Age: 77 Year
  Sex: Female
  Weight: 58.97 kg

DRUGS (2)
  1. CLINDAMYCIN [Suspect]
     Indication: PREOPERATIVE CARE
     Route: 048
     Dates: start: 20120301, end: 20120218
  2. CLINDAMYCIN [Suspect]
     Indication: DENTAL IMPLANTATION
     Route: 048
     Dates: start: 20120301, end: 20120218

REACTIONS (7)
  - Diarrhoea [None]
  - Abdominal pain upper [None]
  - Clostridial infection [None]
  - Asthenia [None]
  - Walking aid user [None]
  - Walking aid user [None]
  - Weight decreased [None]
